FAERS Safety Report 24047600 (Version 1)
Quarter: 2024Q3

REPORT INFORMATION
  Report Type: Spontaneous
  Country: IT (occurrence: IT)
  Receive Date: 20240703
  Receipt Date: 20240703
  Transmission Date: 20241017
  Serious: Yes (Other)
  Sender: PURDUE
  Company Number: IT-002147023-PHHY2019IT165400

PATIENT
  Age: 15 Year
  Sex: Male
  Weight: 30.7 kg

DRUGS (6)
  1. MORPHINE SULFATE [Suspect]
     Active Substance: MORPHINE SULFATE
     Indication: Procedural pain
     Dosage: 2 MILLIGRAM PER MILLILITRE
     Route: 042
  2. MORPHINE SULFATE [Suspect]
     Active Substance: MORPHINE SULFATE
     Dosage: 20 UG/KG (MICROGRAM PER KILOGRAM)
     Route: 038
  3. BACLOFEN [Suspect]
     Active Substance: BACLOFEN
     Indication: Scoliosis
     Dosage: UNK
     Route: 038
  4. KETAMINE [Suspect]
     Active Substance: KETAMINE
     Indication: Procedural pain
     Dosage: 01 MILLIGRAM/KILOGRAM
     Route: 042
  5. KETAMINE [Suspect]
     Active Substance: KETAMINE
     Dosage: UNK
     Route: 041
  6. SUFENTANIL [Suspect]
     Active Substance: SUFENTANIL
     Indication: Procedural pain
     Dosage: 0.1-0.2 ?G/KG
     Route: 042

REACTIONS (4)
  - Sedation complication [Unknown]
  - Sedation [Unknown]
  - Respiratory depression [Recovered/Resolved]
  - Product use in unapproved indication [Unknown]
